FAERS Safety Report 5801172-4 (Version None)
Quarter: 2008Q3

REPORT INFORMATION
  Report Type: 
  Country: None (occurrence: None)
  Receive Date: 20080707
  Receipt Date: 20080625
  Transmission Date: 20090109
  Serious: Yes (Life-Threatening)
  Sender: FDA-Public Use
  Company Number: JP-ELI_LILLY_AND_COMPANY-JP200806005724

PATIENT
  Age: 68 Year
  Sex: Male

DRUGS (2)
  1. ZYPREXA [Suspect]
     Route: 048
  2. GLYSENNID [Concomitant]
     Route: 048

REACTIONS (1)
  - LIVER DISORDER [None]
